FAERS Safety Report 13701009 (Version 1)
Quarter: 2017Q2

REPORT INFORMATION
  Report Type: Spontaneous
  Country: US (occurrence: US)
  Receive Date: 20170628
  Receipt Date: 20170628
  Transmission Date: 20170830
  Serious: Yes (Other)
  Sender: FDA-Public Use
  Company Number: None

PATIENT
  Age: 69 Year
  Sex: Female

DRUGS (1)
  1. VOTRIENT [Suspect]
     Active Substance: PAZOPANIB HYDROCHLORIDE
     Indication: RENAL CELL CARCINOMA
     Dosage: ?          OTHER DOSE:MG;?
     Route: 048
     Dates: start: 20170517, end: 20170628

REACTIONS (4)
  - Diarrhoea [None]
  - Dizziness [None]
  - Fall [None]
  - Head injury [None]

NARRATIVE: CASE EVENT DATE: 20170615
